FAERS Safety Report 11128770 (Version 2)
Quarter: 2015Q2

REPORT INFORMATION
  Report Type: Spontaneous
  Country: US (occurrence: US)
  Receive Date: 20150521
  Receipt Date: 20150521
  Transmission Date: 20150821
  Serious: Yes (Hospitalization, Other)
  Sender: FDA-Public Use
  Company Number: US-ABBVIE-14P-163-1310339-00

PATIENT
  Age: 78 Year
  Sex: Female
  Weight: 67 kg

DRUGS (7)
  1. AZOPT [Concomitant]
     Active Substance: BRINZOLAMIDE
     Indication: PRODUCT USED FOR UNKNOWN INDICATION
  2. SYNTHROID [Suspect]
     Active Substance: LEVOTHYROXINE SODIUM
     Indication: RADIOACTIVE IODINE THERAPY
     Route: 065
  3. CENTRUM SILVER [Concomitant]
     Active Substance: VITAMINS
     Indication: PRODUCT USED FOR UNKNOWN INDICATION
  4. SYNTHROID [Suspect]
     Active Substance: LEVOTHYROXINE SODIUM
     Indication: HYPERTHYROIDISM
     Dosage: IN THE MORNING ON AN EMPTY STOMACH
     Route: 065
  5. AROMASIN [Suspect]
     Active Substance: EXEMESTANE
     Indication: BREAST CANCER
     Route: 065
     Dates: start: 2014, end: 201408
  6. AROMASIN [Suspect]
     Active Substance: EXEMESTANE
     Indication: PROPHYLAXIS
  7. GLUCOPHAGE [Concomitant]
     Active Substance: METFORMIN HYDROCHLORIDE
     Indication: BLOOD GLUCOSE
     Dosage: AFTER BREAKFAST AND AGAIN AT NIGHT

REACTIONS (15)
  - Cystitis [Recovered/Resolved]
  - Rash [Recovering/Resolving]
  - Weight increased [Unknown]
  - Hypertension [Recovered/Resolved]
  - Vomiting [Recovering/Resolving]
  - Nausea [Not Recovered/Not Resolved]
  - Constipation [Unknown]
  - Dyspepsia [Recovering/Resolving]
  - Rash [Unknown]
  - Lip blister [Not Recovered/Not Resolved]
  - Diarrhoea [Recovered/Resolved]
  - Breast cancer stage I [Unknown]
  - Asthenia [Recovered/Resolved]
  - Feeling abnormal [Recovering/Resolving]
  - Type 2 diabetes mellitus [Unknown]

NARRATIVE: CASE EVENT DATE: 2012
